FAERS Safety Report 11650419 (Version 2)
Quarter: 2015Q4

REPORT INFORMATION
  Report Type: Spontaneous
  Country: AR (occurrence: AR)
  Receive Date: 20151021
  Receipt Date: 20151130
  Transmission Date: 20160304
  Serious: Yes (Hospitalization)
  Sender: FDA-Public Use
  Company Number: AR-PFIZER INC-2015345007

PATIENT
  Age: 59 Year
  Sex: Male

DRUGS (6)
  1. SUTENT [Suspect]
     Active Substance: SUNITINIB MALATE
     Indication: METASTATIC RENAL CELL CARCINOMA
     Dosage: 37.5 MG, CYCLIC (4/2 SCHEME)
     Dates: start: 20140614
  2. NAPROXEN. [Concomitant]
     Active Substance: NAPROXEN
  3. MIOPROPAN T [Concomitant]
     Dosage: UNK
     Dates: start: 201506
  4. LANZOPRAL [Concomitant]
     Dosage: UNK
     Dates: start: 201506
  5. FIXERIL [Concomitant]
     Dosage: UNK
     Dates: start: 201507
  6. BILETAN FORTE [Concomitant]

REACTIONS (3)
  - White blood cell count decreased [Recovered/Resolved]
  - Intestinal obstruction [Recovered/Resolved]
  - Abdominal discomfort [Recovered/Resolved]

NARRATIVE: CASE EVENT DATE: 20150929
